FAERS Safety Report 10459781 (Version 2)
Quarter: 2014Q3

REPORT INFORMATION
  Report Type: Spontaneous
  Country: JP (occurrence: JP)
  Receive Date: 20140917
  Receipt Date: 20140922
  Transmission Date: 20150326
  Serious: Yes (Death, Disabling)
  Sender: FDA-Public Use
  Company Number: JP-GLAXOSMITHKLINE-B1034021A

PATIENT
  Age: 89 Year
  Sex: Female

DRUGS (2)
  1. PREDONINE [Concomitant]
     Active Substance: PREDNISOLONE\PREDNISOLONE ACETATE\PREDNISOLONE SODIUM SUCCINATE
     Indication: INTERSTITIAL LUNG DISEASE
     Route: 048
  2. SAMTIREL [Suspect]
     Active Substance: ATOVAQUONE
     Indication: INTERSTITIAL LUNG DISEASE
     Dosage: 1500MG PER DAY
     Route: 048
     Dates: start: 20140905, end: 20140908

REACTIONS (3)
  - Pulmonary thrombosis [Fatal]
  - Hyponatraemia [Recovering/Resolving]
  - Altered state of consciousness [Recovering/Resolving]

NARRATIVE: CASE EVENT DATE: 20140908
